FAERS Safety Report 12551719 (Version 1)
Quarter: 2016Q3

REPORT INFORMATION
  Report Type: Spontaneous
  Country: US (occurrence: US)
  Receive Date: 20160713
  Receipt Date: 20160713
  Transmission Date: 20161109
  Serious: Yes (Other)
  Sender: FDA-Public Use
  Company Number: US-TEVA-595686USA

PATIENT
  Sex: Male

DRUGS (4)
  1. BANZEL [Concomitant]
     Active Substance: RUFINAMIDE
  2. KEPPRA [Concomitant]
     Active Substance: LEVETIRACETAM
  3. SERTRALINE [Concomitant]
     Active Substance: SERTRALINE HYDROCHLORIDE
  4. RISPERIDONE. [Suspect]
     Active Substance: RISPERIDONE
     Route: 065

REACTIONS (2)
  - Seizure [Unknown]
  - Anxiety [Unknown]
